FAERS Safety Report 9848608 (Version 2)
Quarter: 2014Q1

REPORT INFORMATION
  Report Type: Report from Study
  Country: CO (occurrence: CO)
  Receive Date: 20140128
  Receipt Date: 20140311
  Transmission Date: 20141002
  Serious: Yes (Hospitalization, Other)
  Sender: FDA-Public Use
  Company Number: CO-ROCHE-1340571

PATIENT
  Age: 76 Year
  Sex: Female
  Weight: 69 kg

DRUGS (4)
  1. LUCENTIS [Suspect]
     Indication: PRODUCT USED FOR UNKNOWN INDICATION
     Route: 050
     Dates: start: 20131127
  2. LEVOTHYROXINE [Concomitant]
  3. ASPIRIN [Concomitant]
  4. INSULIN [Concomitant]

REACTIONS (1)
  - Pneumonia [Recovered/Resolved]
